FAERS Safety Report 5919725-1 (Version None)
Quarter: 2008Q4

REPORT INFORMATION
  Report Type: 
  Country: None (occurrence: None)
  Receive Date: 20081015
  Receipt Date: 20081008
  Transmission Date: 20090506
  Serious: No
  Sender: FDA-Public Use
  Company Number: US-B.I. PHARMACEUTICALS,INC./RIDGEFIELD-2008-BP-15609BP

PATIENT

DRUGS (2)
  1. VIRAMUNE [Suspect]
     Indication: HIV INFECTION
  2. KIVEXA (LAMIVUDINE ABACAVIR) [Concomitant]
     Indication: HIV INFECTION

REACTIONS (3)
  - BODY DYSMORPHIC DISORDER [None]
  - FAT REDISTRIBUTION [None]
  - PRURITUS [None]
